FAERS Safety Report 14992814 (Version 1)
Quarter: 2018Q2

REPORT INFORMATION
  Report Type: Spontaneous
  Country: US (occurrence: US)
  Receive Date: 20180517
  Receipt Date: 20180517
  Transmission Date: 20180711
  Serious: No
  Sender: FDA-Public Use
  Company Number: None

PATIENT
  Age: 60 Year
  Sex: Female

DRUGS (1)
  1. ADCIRCA [Suspect]
     Active Substance: TADALAFIL

REACTIONS (4)
  - Sinusitis [None]
  - Eye pain [None]
  - Headache [None]
  - Myalgia [None]

NARRATIVE: CASE EVENT DATE: 20180501
